FAERS Safety Report 4968952-9 (Version None)
Quarter: 2006Q2

REPORT INFORMATION
  Report Type: 
  Country: None (occurrence: None)
  Receive Date: 20060411
  Receipt Date: 20051005
  Transmission Date: 20061013
  Serious: Yes (Hospitalization, Other)
  Sender: FDA-Public Use
  Company Number: US-MERCK-0510USA06962

PATIENT
  Age: 75 Year
  Sex: Female
  Weight: 73 kg

DRUGS (14)
  1. CARDURA [Concomitant]
     Indication: HYPERTENSION
     Route: 065
     Dates: start: 19900101
  2. TENORMIN [Concomitant]
     Indication: HYPERTENSION
     Route: 065
  3. ASPIRIN [Concomitant]
     Indication: CEREBROVASCULAR ACCIDENT PROPHYLAXIS
     Route: 065
     Dates: start: 20000101
  4. PRAVACHOL [Concomitant]
     Indication: BLOOD CHOLESTEROL INCREASED
     Route: 065
     Dates: start: 19950101
  5. CELEBREX [Concomitant]
     Indication: OSTEOARTHRITIS
     Route: 065
     Dates: start: 20020101
  6. VIOXX [Suspect]
     Indication: ARTHRITIS
     Route: 048
     Dates: start: 20031101, end: 20040101
  7. VIOXX [Suspect]
     Route: 065
     Dates: start: 19990101, end: 19990101
  8. VIOXX [Suspect]
     Route: 065
     Dates: start: 20020101, end: 20020101
  9. LIPITOR [Concomitant]
     Indication: BLOOD CHOLESTEROL INCREASED
     Route: 065
  10. DIOVAN [Concomitant]
     Indication: HYPERTENSION
     Route: 065
     Dates: start: 20030101
  11. TOPROL-XL [Concomitant]
     Indication: HYPERTENSION
     Route: 065
     Dates: start: 20030101
  12. DOXAZOSIN MESYLATE [Concomitant]
     Route: 065
  13. MOBIC [Concomitant]
     Route: 065
  14. DETROL LA [Concomitant]
     Route: 065

REACTIONS (5)
  - AMNESIA [None]
  - ARTHROPATHY [None]
  - CEREBROVASCULAR ACCIDENT [None]
  - HIP FRACTURE [None]
  - TRANSIENT ISCHAEMIC ATTACK [None]
